FAERS Safety Report 9800051 (Version 3)
Quarter: 2015Q3

REPORT INFORMATION
  Report Type: Spontaneous
  Country: US (occurrence: US)
  Receive Date: 20140106
  Receipt Date: 20150806
  Transmission Date: 20151125
  Serious: No
  Sender: FDA-Public Use
  Company Number: US-GILEAD-2010-0032137

PATIENT
  Age: 57 Year
  Sex: Female
  Weight: 103.42 kg

DRUGS (23)
  1. METOLAZONE. [Concomitant]
     Active Substance: METOLAZONE
  2. SYMBICORT [Concomitant]
     Active Substance: BUDESONIDE\FORMOTEROL FUMARATE DIHYDRATE
  3. ALPHAGAN P [Concomitant]
     Active Substance: BRIMONIDINE TARTRATE
  4. ESTRADIOL. [Concomitant]
     Active Substance: ESTRADIOL
  5. POTASSIUM CHLORIDE. [Concomitant]
     Active Substance: POTASSIUM CHLORIDE
  6. SINGULAIR [Concomitant]
     Active Substance: MONTELUKAST SODIUM
  7. PLAQUENIL [Concomitant]
     Active Substance: HYDROXYCHLOROQUINE SULFATE
  8. PREDNISONE. [Concomitant]
     Active Substance: PREDNISONE
  9. REVATIO [Concomitant]
     Active Substance: SILDENAFIL CITRATE
  10. LASIX [Concomitant]
     Active Substance: FUROSEMIDE
  11. XANAX [Concomitant]
     Active Substance: ALPRAZOLAM
  12. LETAIRIS [Suspect]
     Active Substance: AMBRISENTAN
     Indication: PULMONARY ARTERIAL HYPERTENSION
     Route: 048
     Dates: start: 20100310
  13. IPRATROPIUM BROMIDE/SALBUTAMOL SULFATE [Concomitant]
  14. IPRATROPIUM BROMIDE. [Concomitant]
     Active Substance: IPRATROPIUM BROMIDE
  15. LANTUS [Concomitant]
     Active Substance: INSULIN GLARGINE
  16. ALENDRONATE [Concomitant]
     Active Substance: ALENDRONATE SODIUM
  17. LUMIGAN [Concomitant]
     Active Substance: BIMATOPROST
  18. DIOVAN [Concomitant]
     Active Substance: VALSARTAN
  19. DIGOXIN. [Concomitant]
     Active Substance: DIGOXIN
  20. GABAPENTIN. [Concomitant]
     Active Substance: GABAPENTIN
  21. AZATHIOPRINE. [Concomitant]
     Active Substance: AZATHIOPRINE
  22. AZOPT [Concomitant]
     Active Substance: BRINZOLAMIDE
  23. MAG-OX [Concomitant]
     Active Substance: MAGNESIUM OXIDE

REACTIONS (1)
  - Contusion [Unknown]
